FAERS Safety Report 8460844-6 (Version None)
Quarter: 2012Q2

REPORT INFORMATION
  Report Type: 
  Country: None (occurrence: None)
  Receive Date: 20120624
  Receipt Date: 20120618
  Transmission Date: 20120825
  Serious: Yes (Other)
  Sender: FDA-Public Use
  Company Number: US-AMGEN-USASP2012031861

PATIENT
  Age: 55 Year
  Sex: Male
  Weight: 81.769 kg

DRUGS (5)
  1. NPLATE [Suspect]
     Indication: IDIOPATHIC THROMBOCYTOPENIC PURPURA
     Dosage: 750 MUG, QWK
     Dates: start: 20110524
  2. NPLATE [Suspect]
  3. SIMVASTATIN [Concomitant]
  4. SEROQUEL [Concomitant]
  5. BACLOFEN [Concomitant]

REACTIONS (3)
  - FALL [None]
  - HEADACHE [None]
  - PLATELET COUNT DECREASED [None]
